FAERS Safety Report 8093163-0 (Version None)
Quarter: 2012Q1

REPORT INFORMATION
  Report Type: 
  Country: None (occurrence: None)
  Receive Date: 20120128
  Receipt Date: 20110912
  Transmission Date: 20120608
  Serious: No
  Sender: FDA-Public Use
  Company Number: US-ABBOTT-11P-163-0847463-00

PATIENT
  Sex: Female

DRUGS (5)
  1. PHENTERMINE [Concomitant]
     Indication: WEIGHT DECREASED
  2. HUMIRA [Suspect]
     Indication: CROHN'S DISEASE
     Dosage: DAY ONE
     Route: 058
     Dates: start: 20110702, end: 20110815
  3. SYNTHROID [Concomitant]
     Indication: HYPOTHYROIDISM
  4. BIOTIN [Concomitant]
     Indication: PRODUCT USED FOR UNKNOWN INDICATION
     Dosage: VITAMIN SUPPLEMENT
  5. HYDROCHLOROTHIAZIDE [Concomitant]
     Indication: SWELLING
     Dosage: 12/25MG AS REQUIRED

REACTIONS (4)
  - INJECTION SITE HAEMATOMA [None]
  - OVERDOSE [None]
  - INCORRECT DOSE ADMINISTERED [None]
  - INJECTION SITE PAIN [None]
